FAERS Safety Report 5167480-8 (Version None)
Quarter: 2006Q4

REPORT INFORMATION
  Report Type: 
  Country: None (occurrence: None)
  Receive Date: 20061130
  Receipt Date: 20061117
  Transmission Date: 20070319
  Serious: Yes (Death)
  Sender: FDA-Public Use
  Company Number: 15208

PATIENT
  Age: 56 Year
  Sex: Female

DRUGS (2)
  1. PAMIDRONATE DISODIUM [Suspect]
     Indication: MULTIPLE MYELOMA
  2. THALIDOMIDE [Concomitant]

REACTIONS (10)
  - BLOOD PARATHYROID HORMONE INCREASED [None]
  - BONE DISORDER [None]
  - FIBROSIS [None]
  - HIGH TURNOVER OSTEOPATHY [None]
  - HYPERPARATHYROIDISM SECONDARY [None]
  - HYPOCALCAEMIA [None]
  - MALIGNANT NEOPLASM PROGRESSION [None]
  - MULTIPLE MYELOMA [None]
  - OSTEOPROTEGERIN LIGAND [None]
  - RENAL IMPAIRMENT [None]
